FAERS Safety Report 24162988 (Version 1)
Quarter: 2024Q3

REPORT INFORMATION
  Report Type: Report from Study
  Country: CA (occurrence: CA)
  Receive Date: 20240801
  Receipt Date: 20240801
  Transmission Date: 20241017
  Serious: Yes (Other)
  Sender: TEVA
  Company Number: CA-TEVA-VS-3219919

PATIENT
  Age: 49 Year
  Sex: Female

DRUGS (6)
  1. AJOVY [Suspect]
     Active Substance: FREMANEZUMAB-VFRM
     Indication: Migraine
     Dosage: LAST DOSE ADMINISTERED DATE 14-JUN-2024
     Route: 058
     Dates: start: 20240529, end: 20240721
  2. GABAPENTIN [Concomitant]
     Active Substance: GABAPENTIN
  3. DULOXETINE [Concomitant]
     Active Substance: DULOXETINE
  4. TOPIRAMATE [Concomitant]
     Active Substance: TOPIRAMATE
  5. PREGABALIN [Concomitant]
     Active Substance: PREGABALIN
  6. NORTRIPTYLINE [Concomitant]
     Active Substance: NORTRIPTYLINE

REACTIONS (6)
  - Headache [Recovered/Resolved]
  - Somnolence [Unknown]
  - Malaise [Unknown]
  - Constipation [Unknown]
  - Fatigue [Unknown]
  - Malaise [Unknown]

NARRATIVE: CASE EVENT DATE: 20240101
